FAERS Safety Report 5020699-9 (Version None)
Quarter: 2006Q2

REPORT INFORMATION
  Report Type: 
  Country: None (occurrence: None)
  Receive Date: 20060602
  Receipt Date: 20060519
  Transmission Date: 20061013
  Serious: Yes (Hospitalization)
  Sender: FDA-Public Use
  Company Number: 2006SP002115

PATIENT
  Age: 35 Year
  Sex: Female
  Weight: 95 kg

DRUGS (2)
  1. LUNESTA [Suspect]
     Indication: INSOMNIA
     Dosage: 20 MG; 1X, ORAL
     Route: 048
     Dates: start: 20060517, end: 20060517
  2. DOXEPIN [Suspect]
     Dosage: 1X, ORAL
     Route: 048
     Dates: start: 20060517, end: 20060517

REACTIONS (6)
  - DRUG TOXICITY [None]
  - ELECTROCARDIOGRAM QT CORRECTED INTERVAL PROLONGED [None]
  - HYPERTENSION [None]
  - HYPOTENSION [None]
  - INTENTIONAL OVERDOSE [None]
  - SUICIDE ATTEMPT [None]
